FAERS Safety Report 12329893 (Version 2)
Quarter: 2016Q2

REPORT INFORMATION
  Report Type: Report from Study
  Country: DE (occurrence: DE)
  Receive Date: 20160503
  Receipt Date: 20160510
  Transmission Date: 20160815
  Serious: Yes (Hospitalization)
  Sender: FDA-Public Use
  Company Number: DE-AMGEN-DEUNI2016006689

PATIENT
  Age: 76 Year
  Sex: Female

DRUGS (20)
  1. FOSTER [Concomitant]
     Active Substance: BECLOMETHASONE\FORMOTEROL
     Dosage: 100/6, 2-0-2
  2. ZINKAMIN [Concomitant]
  3. HUMALOG [Concomitant]
     Active Substance: INSULIN LISPRO
  4. NOVALGIN [Concomitant]
     Active Substance: METAMIZOLE SODIUM
  5. SALBUTAMOL [Concomitant]
     Active Substance: ALBUTEROL
  6. VITAMIN B COMPLEX [Concomitant]
     Active Substance: CYANOCOBALAMIN\DEXPANTHENOL\NIACINAMIDE\PYRIDOXINE HYDROCHLORIDE\RIBOFLAVIN 5^-PHOSPHATE SODIUM\THIAMINE HYDROCHLORIDE\VITAMIN B COMPLEX
  7. CANDESARTAN [Concomitant]
     Active Substance: CANDESARTAN
  8. FUROSEMID                          /00032601/ [Concomitant]
     Active Substance: FUROSEMIDE
  9. L-THYROXIN [Concomitant]
     Active Substance: LEVOTHYROXINE SODIUM
  10. VIGANTOLETTEN [Concomitant]
     Active Substance: CHOLECALCIFEROL
  11. MIRTAZAPIN [Concomitant]
     Active Substance: MIRTAZAPINE
  12. OXYCODON [Concomitant]
     Active Substance: OXYCODONE
  13. ASPIRIN. [Concomitant]
     Active Substance: ASPIRIN
  14. FERRO-SANOL DUODENAL [Concomitant]
     Active Substance: FERROUS GLYCINE SULFATE
  15. ETANERCEPT [Suspect]
     Active Substance: ETANERCEPT
     Indication: PRODUCT USED FOR UNKNOWN INDICATION
     Dosage: 50 MG, WEEKLY
     Route: 065
     Dates: end: 20150103
  16. ETANERCEPT [Suspect]
     Active Substance: ETANERCEPT
     Dosage: 50 MG, WEEKLY
     Route: 065
     Dates: start: 20151114, end: 20160106
  17. OMEP                               /00661201/ [Concomitant]
     Active Substance: OMEPRAZOLE
  18. TOUJEO [Concomitant]
     Active Substance: INSULIN GLARGINE
  19. HCT [Concomitant]
     Active Substance: HYDROCHLOROTHIAZIDE
  20. METOHEXAL                          /00376903/ [Concomitant]
     Active Substance: METOPROLOL SUCCINATE
     Dosage: 95 UNK, UNK

REACTIONS (2)
  - Erysipelas [Not Recovered/Not Resolved]
  - Erythema nodosum [Not Recovered/Not Resolved]

NARRATIVE: CASE EVENT DATE: 20160103
